FAERS Safety Report 8935973 (Version 1)
Quarter: 2012Q4

REPORT INFORMATION
  Report Type: 
  Country: US (occurrence: US)
  Receive Date: 20121130
  Receipt Date: 20121130
  Transmission Date: 20130627
  Serious: No
  Sender: FDA-Public Use
  Company Number: US-ABBOTT-12P-163-0994296-00

PATIENT
  Sex: Male
  Weight: 86.26 kg

DRUGS (6)
  1. ANDROGEL [Suspect]
     Indication: BLOOD TESTOSTERONE DECREASED
     Dosage: 4 pump actuations per day
     Route: 058
     Dates: start: 201210
  2. ANDROGEL [Suspect]
     Dosage: 3 pump actuations per day
     Route: 058
     Dates: start: 2012, end: 201210
  3. ANDROGEL [Suspect]
     Dosage: 2 pump actuations per day
     Route: 058
     Dates: start: 2012, end: 2012
  4. ANDROGEL [Suspect]
     Dosage: 1 pump actuations per day
     Route: 058
     Dates: start: 2012, end: 2012
  5. ANDROGEL [Suspect]
     Indication: BLOOD TESTOSTERONE DECREASED
     Dosage: Packet
     Route: 061
  6. ANDROGEL [Suspect]
     Dosage: Pump, Unknown dose
     Route: 061
     Dates: start: 2010, end: 2010

REACTIONS (12)
  - Drug administration error [Not Recovered/Not Resolved]
  - Drug ineffective [Not Recovered/Not Resolved]
  - Therapeutic response unexpected [Recovered/Resolved]
  - Energy increased [Recovered/Resolved]
  - Libido increased [Recovered/Resolved]
  - Therapeutic response unexpected [Recovered/Resolved]
  - Therapeutic response unexpected [Recovered/Resolved]
  - Aggression [Recovered/Resolved]
  - Therapeutic response unexpected [Recovered/Resolved]
  - Arthralgia [Recovered/Resolved]
  - Spontaneous penile erection [Recovered/Resolved]
  - Product quality issue [Unknown]
